FAERS Safety Report 9004835 (Version 1)
Quarter: 2012Q4

REPORT INFORMATION
  Report Type: Spontaneous
  Country: US (occurrence: None)
  Receive Date: 20121226
  Receipt Date: 20121226
  Transmission Date: 20130627
  Serious: Yes (Other)
  Sender: FDA-Public Use
  Company Number: 1212-822

PATIENT
  Age: 82 Year
  Sex: Female
  Weight: 61.24 kg

DRUGS (4)
  1. EYLEA [Suspect]
     Dates: start: 201209
  2. ATENOLOL (ATENOLOL) [Concomitant]
  3. LORATADINE (LORATADINE) [Concomitant]
  4. SUPPLEMENT (KAPSOVIT) [Concomitant]

REACTIONS (5)
  - Vision blurred [None]
  - Diplopia [None]
  - Pain [None]
  - Vitreous floaters [None]
  - Eye haemorrhage [None]
